FAERS Safety Report 5290733-X (Version None)
Quarter: 2007Q2

REPORT INFORMATION
  Report Type: 
  Country: None (occurrence: None)
  Receive Date: 20070409
  Receipt Date: 20070407
  Transmission Date: 20071010
  Serious: Yes (Hospitalization)
  Sender: FDA-Public Use
  Company Number: US-GENENTECH-234885

PATIENT
  Age: 64 Year
  Sex: Female

DRUGS (6)
  1. XOLAIR [Suspect]
     Indication: ASTHMA
     Dosage: UNK, Q2W
  2. DIOVAN [Concomitant]
     Indication: HYPERTENSION
  3. ALBUTEROL [Concomitant]
     Indication: ASTHMA
  4. SINGULAIR [Concomitant]
     Indication: DRUG USE FOR UNKNOWN INDICATION
  5. MEDICATION (UNK INGREDIENT) [Concomitant]
     Indication: DEPRESSION
  6. MEDICATION (UNK INGREDIENT) [Concomitant]

REACTIONS (1)
  - LUNG INFECTION [None]
